FAERS Safety Report 9956595 (Version 1)
Quarter: 2014Q1

REPORT INFORMATION
  Report Type: Report from Study
  Country: US (occurrence: US)
  Receive Date: 20140304
  Receipt Date: 20140304
  Transmission Date: 20141002
  Serious: No
  Sender: FDA-Public Use
  Company Number: US-ABBVIE-13P-163-1094820-00

PATIENT
  Age: 52 Year
  Sex: Female

DRUGS (11)
  1. HUMIRA [Suspect]
     Indication: CROHN^S DISEASE
     Dates: start: 20130225
  2. LOVASTATIN [Concomitant]
     Indication: BLOOD CHOLESTEROL INCREASED
     Dosage: EVERY BEDTIME
  3. TRAZODONE [Concomitant]
     Indication: INSOMNIA
     Dosage: AT 4PM
  4. REQUIP [Concomitant]
     Indication: RESTLESS LEGS SYNDROME
  5. EFFEXOR [Concomitant]
     Indication: DEPRESSION
  6. KLONOPIN [Concomitant]
     Indication: ANXIETY
  7. PROTONIX [Concomitant]
     Indication: GASTROOESOPHAGEAL REFLUX DISEASE
  8. ATROVENT [Concomitant]
     Indication: ASTHMA
     Dosage: INHALER
  9. SINGULAIR [Concomitant]
     Indication: SEASONAL ALLERGY
     Dosage: DAILY
  10. QBAR [Concomitant]
     Indication: ASTHMA
     Dosage: INHALER
  11. DILAUDID [Concomitant]
     Indication: NEURALGIA

REACTIONS (1)
  - Crohn^s disease [Not Recovered/Not Resolved]
